FAERS Safety Report 9949143 (Version 1)
Quarter: 2014Q1

REPORT INFORMATION
  Report Type: Spontaneous
  Country: US (occurrence: US)
  Receive Date: 20140304
  Receipt Date: 20140304
  Transmission Date: 20141002
  Serious: No
  Sender: FDA-Public Use
  Company Number: US-PFIZER INC-2014058877

PATIENT
  Age: 77 Year
  Sex: Female
  Weight: 68.03 kg

DRUGS (3)
  1. NORPACE CR [Suspect]
     Indication: ARRHYTHMIA
     Dosage: 150 MG, 2X/DAY
     Dates: start: 20140219
  2. NORPACE CR [Suspect]
     Indication: ATRIAL FIBRILLATION
  3. NORPACE CR [Suspect]
     Indication: SUPRAVENTRICULAR TACHYCARDIA

REACTIONS (9)
  - Dry mouth [Unknown]
  - Dysphonia [Unknown]
  - Oropharyngeal pain [Not Recovered/Not Resolved]
  - Dry throat [Not Recovered/Not Resolved]
  - Flatulence [Not Recovered/Not Resolved]
  - Abdominal distension [Not Recovered/Not Resolved]
  - Dysuria [Not Recovered/Not Resolved]
  - Constipation [Not Recovered/Not Resolved]
  - Dysphonia [Not Recovered/Not Resolved]
